FAERS Safety Report 5385205-8 (Version None)
Quarter: 2007Q3

REPORT INFORMATION
  Report Type: 
  Country: None (occurrence: None)
  Receive Date: 20070709
  Receipt Date: 20070626
  Transmission Date: 20080115
  Serious: Yes (Other)
  Sender: FDA-Public Use
  Company Number: 2007SP012754

PATIENT
  Age: 65 Year
  Sex: Male

DRUGS (2)
  1. NASONEX [Suspect]
     Indication: DRUG USE FOR UNKNOWN INDICATION
     Dosage: 1 DF; ;NAS
     Route: 045
  2. KAVEPENIN [Concomitant]

REACTIONS (3)
  - FALL [None]
  - INJURY [None]
  - SYNCOPE [None]
